FAERS Safety Report 15305640 (Version 2)
Quarter: 2018Q3

REPORT INFORMATION
  Report Type: Report from Study
  Country: DE (occurrence: DE)
  Receive Date: 20180822
  Receipt Date: 20180828
  Transmission Date: 20181010
  Serious: Yes (Death, Life-Threatening, Hospitalization, Other)
  Sender: FDA-Public Use
  Company Number: DE-TEVA-2018-DE-944491

PATIENT
  Age: 80 Year
  Sex: Male

DRUGS (10)
  1. IMATINIB MESILATE [Suspect]
     Active Substance: IMATINIB MESYLATE
     Indication: CHRONIC MYELOID LEUKAEMIA
     Dosage: 400 MILLIGRAM DAILY;
     Route: 065
  2. DASATINIB. [Suspect]
     Active Substance: DASATINIB
     Indication: CHRONIC MYELOID LEUKAEMIA
     Dosage: 50 MILLIGRAM DAILY;
     Route: 065
     Dates: start: 20160706, end: 20160906
  3. GLIVEC [Suspect]
     Active Substance: IMATINIB MESYLATE
     Dosage: 300 MILLIGRAM DAILY;
     Route: 065
     Dates: start: 20160516, end: 20170413
  4. DASATINIB. [Suspect]
     Active Substance: DASATINIB
     Dosage: 100 MILLIGRAM DAILY;
     Dates: start: 20130927, end: 20131104
  5. DASATINIB. [Suspect]
     Active Substance: DASATINIB
     Dosage: 1 DOSAGE FORMS DAILY;
     Dates: start: 20151219, end: 20160906
  6. DASATINIB. [Suspect]
     Active Substance: DASATINIB
     Dosage: 50 MILLIGRAM DAILY;
     Dates: start: 20150707, end: 20160706
  7. HYDROXYUREA. [Suspect]
     Active Substance: HYDROXYUREA
     Indication: CHRONIC MYELOID LEUKAEMIA
     Dosage: UNK
     Route: 065
     Dates: start: 20130809, end: 20130811
  8. GLIVEC [Suspect]
     Active Substance: IMATINIB MESYLATE
     Indication: PRODUCT USED FOR UNKNOWN INDICATION
     Route: 065
     Dates: start: 20130812, end: 20130927
  9. DASATINIB. [Suspect]
     Active Substance: DASATINIB
     Dosage: 60 MILLIGRAM DAILY;
     Route: 065
     Dates: start: 20150707, end: 20151219
  10. DASATINIB. [Suspect]
     Active Substance: DASATINIB
     Indication: PRODUCT USED FOR UNKNOWN INDICATION
     Dosage: 80 MILLIGRAM DAILY;
     Route: 065
     Dates: start: 20131105, end: 20150706

REACTIONS (14)
  - Myalgia [Unknown]
  - Pain [Fatal]
  - Pleural effusion [Recovered/Resolved]
  - Anaemia [Not Recovered/Not Resolved]
  - Oedema [Unknown]
  - Bronchitis [Fatal]
  - Haemothorax [Recovered/Resolved]
  - Hyperchromic anaemia [Recovered/Resolved]
  - Cardiac failure [Fatal]
  - Pain in extremity [Unknown]
  - Arthralgia [Unknown]
  - Haemoglobin decreased [Not Recovered/Not Resolved]
  - Gangrene [Recovered/Resolved]
  - Infection [Unknown]

NARRATIVE: CASE EVENT DATE: 20140701
